FAERS Safety Report 10515568 (Version 2)
Quarter: 2015Q3

REPORT INFORMATION
  Report Type: Spontaneous
  Country: GH (occurrence: GH)
  Receive Date: 20141014
  Receipt Date: 20150819
  Transmission Date: 20151125
  Serious: Yes (Death)
  Sender: FDA-Public Use
  Company Number: GH-ROCHE-1474456

PATIENT
  Age: 63 Year
  Sex: Female

DRUGS (3)
  1. CYCLOPHOSPHAMIDE. [Concomitant]
     Active Substance: CYCLOPHOSPHAMIDE
  2. EPIRUBICIN [Concomitant]
     Active Substance: EPIRUBICIN
  3. HERCEPTIN [Suspect]
     Active Substance: TRASTUZUMAB
     Indication: BREAST CANCER
     Dosage: UNKNOWN DOSE GIVEN ONCE EVERY WEEK FOR 9 WEEKS
     Route: 042

REACTIONS (1)
  - Chronic hepatic failure [Fatal]
